FAERS Safety Report 7623168-2 (Version None)
Quarter: 2011Q3

REPORT INFORMATION
  Report Type: 
  Country: None (occurrence: None)
  Receive Date: 20110720
  Receipt Date: 20110708
  Transmission Date: 20111222
  Serious: Yes (Other)
  Sender: FDA-Public Use
  Company Number: PHHY2009CA18462

PATIENT
  Sex: Female

DRUGS (6)
  1. SYNTHROID [Concomitant]
  2. LISINOPRIL [Concomitant]
  3. SANDOSTATIN LAR [Suspect]
     Indication: ACROMEGALY
     Dosage: 30 MG, QMO
     Route: 030
     Dates: start: 20041026
  4. DILANTIN [Concomitant]
  5. NORTRIPTYLINE HCL [Concomitant]
  6. TOPIRAMATE [Concomitant]

REACTIONS (11)
  - LOSS OF CONSCIOUSNESS [None]
  - BLOOD GLUCOSE FLUCTUATION [None]
  - THYROID CYST [None]
  - HEADACHE [None]
  - BLOOD GLUCOSE INCREASED [None]
  - BALANCE DISORDER [None]
  - URINARY TRACT INFECTION [None]
  - DYSPNOEA [None]
  - CHEST DISCOMFORT [None]
  - NASOPHARYNGITIS [None]
  - BLINDNESS [None]
